FAERS Safety Report 8519918 (Version 3)
Quarter: 2012Q4

REPORT INFORMATION
  Report Type: Report from Study
  Country: BE (occurrence: BE)
  Receive Date: 20120418
  Receipt Date: 20121015
  Transmission Date: 20130627
  Serious: Yes (Other)
  Sender: FDA-Public Use
  Company Number: BE-CELGENEUS-013-C5013-12040431

PATIENT
  Age: 72 Year
  Sex: Male
  Weight: 96 kg

DRUGS (44)
  1. THALIDOMIDE [Suspect]
     Indication: MULTIPLE MYELOMA
     Route: 048
     Dates: start: 20090702
  2. THALIDOMIDE [Suspect]
     Dates: end: 20091008
  3. MELPHALAN [Suspect]
     Indication: MULTIPLE MYELOMA
     Route: 065
     Dates: start: 20090702
  4. MELPHALAN [Suspect]
     Route: 065
     Dates: end: 20090927
  5. PREDNISONE [Suspect]
     Indication: MULTIPLE MYELOMA
     Route: 065
     Dates: start: 20090702
  6. PREDNISONE [Suspect]
     Route: 065
     Dates: end: 20090927
  7. SODIUM CHLORIDE [Concomitant]
     Indication: DRUG USE FOR UNKNOWN INDICATION
     Route: 041
     Dates: start: 20120328, end: 20120328
  8. SODIUM CHLORIDE [Concomitant]
     Dosage: 2-1
     Route: 041
     Dates: start: 20120329, end: 20120329
  9. GLUCOSE [Concomitant]
     Indication: DRUG USE FOR UNKNOWN INDICATION
     Route: 041
     Dates: start: 20120405
  10. ACTRAPID HUMAN [Concomitant]
     Indication: DRUG USE FOR UNKNOWN INDICATION
     Dosage: 4-1
     Route: 058
     Dates: start: 20120326, end: 20120327
  11. ACTRAPID HUMAN [Concomitant]
     Dosage: 2-1
     Route: 058
     Dates: start: 20120328, end: 20120328
  12. ACTRAPID HUMAN [Concomitant]
     Dosage: 4-1
     Route: 058
     Dates: start: 20120329, end: 20120331
  13. ACTRAPID HUMAN [Concomitant]
     Route: 058
     Dates: start: 20120401, end: 20120402
  14. ACTRAPID HUMAN [Concomitant]
     Dosage: 2-1
     Route: 058
     Dates: start: 20120403, end: 20120404
  15. ZANTAC [Concomitant]
     Indication: DRUG USE FOR UNKNOWN INDICATION
     Dosage: 300 Milligram
     Route: 048
     Dates: start: 20120322, end: 20120328
  16. ZANTAC [Concomitant]
     Dosage: 300 Milligram
     Route: 048
     Dates: start: 20120330, end: 20120404
  17. ZANTAC [Concomitant]
     Dosage: 300 Milligram
     Route: 048
     Dates: start: 20120406, end: 20120406
  18. MOVICOL [Concomitant]
     Indication: DRUG USE FOR UNKNOWN INDICATION
     Route: 048
     Dates: start: 20120328, end: 20120329
  19. INSULINE ACTRAPID [Concomitant]
     Indication: DRUG USE FOR UNKNOWN INDICATION
     Dosage: 4E+6E
     Route: 058
     Dates: start: 20120401, end: 20120401
  20. INSULINE ACTRAPID [Concomitant]
     Dosage: 3E
     Route: 058
     Dates: start: 20120402, end: 20120402
  21. INSULINE ACTRAPID [Concomitant]
     Dosage: 4E
     Route: 058
     Dates: start: 20120403, end: 20120403
  22. INSULINE ACTRAPID [Concomitant]
     Dosage: 2E
     Route: 058
     Dates: start: 20120428, end: 20120428
  23. GLUCOPHAG [Concomitant]
     Indication: DRUG USE FOR UNKNOWN INDICATION
     Route: 048
     Dates: start: 20120325, end: 20120328
  24. GLUCOPHAG [Concomitant]
     Route: 048
     Dates: start: 20120329, end: 20120329
  25. GLUCOPHAG [Concomitant]
     Route: 048
     Dates: start: 20120330, end: 20120404
  26. GLUCOPHAG [Concomitant]
     Route: 048
     Dates: start: 20120406, end: 20120406
  27. INSULINE NOVOMIX [Concomitant]
     Indication: DRUG USE FOR UNKNOWN INDICATION
     Route: 058
     Dates: start: 20120406, end: 20120406
  28. CALCIT [Concomitant]
     Indication: DRUG USE FOR UNKNOWN INDICATION
     Route: 048
     Dates: start: 20120322, end: 20120404
  29. CALCIT [Concomitant]
     Route: 048
     Dates: start: 20120406, end: 20120406
  30. MARCOUMAR [Concomitant]
     Indication: DRUG USE FOR UNKNOWN INDICATION
     Route: 048
     Dates: start: 20120322, end: 20120322
  31. CLEXANE [Concomitant]
     Indication: DRUG USE FOR UNKNOWN INDICATION
     Dosage: 80mg/0.8ml
     Route: 058
     Dates: start: 20120325, end: 20120325
  32. CLEXANE [Concomitant]
     Dosage: 80mg/0.8ml
     Route: 058
     Dates: start: 20120327, end: 20120404
  33. CLEXANE [Concomitant]
     Dosage: 80mg/0.8ml
     Route: 058
     Dates: start: 20120406, end: 20120406
  34. KONAKION [Concomitant]
     Indication: DRUG USE FOR UNKNOWN INDICATION
     Dosage: 10mg/1ml
     Route: 041
     Dates: start: 20120323, end: 20120323
  35. CORUNO [Concomitant]
     Indication: DRUG USE FOR UNKNOWN INDICATION
     Route: 048
     Dates: start: 20120322, end: 20120404
  36. CORUNO [Concomitant]
     Route: 048
     Dates: start: 20120406, end: 20120406
  37. TILDIEM [Concomitant]
     Indication: DRUG USE FOR UNKNOWN INDICATION
     Route: 048
     Dates: start: 20120322, end: 20120404
  38. TILDIEM [Concomitant]
     Route: 048
     Dates: start: 20120406, end: 20120406
  39. COVERSYL [Concomitant]
     Indication: DRUG USE FOR UNKNOWN INDICATION
     Route: 048
     Dates: start: 20120322, end: 20120403
  40. COVERSYL [Concomitant]
     Route: 048
     Dates: start: 20120404, end: 20120404
  41. COVERSYL [Concomitant]
     Route: 048
     Dates: start: 20120406, end: 20120406
  42. MEDROL [Concomitant]
     Indication: DRUG USE FOR UNKNOWN INDICATION
     Route: 048
     Dates: start: 20120406, end: 20120406
  43. XANAX [Concomitant]
     Indication: DRUG USE FOR UNKNOWN INDICATION
     Route: 048
     Dates: start: 20120322, end: 20120404
  44. XANAX [Concomitant]
     Route: 048
     Dates: start: 20120406, end: 20120406

REACTIONS (1)
  - Plasmacytoma [Not Recovered/Not Resolved]
